FAERS Safety Report 11149796 (Version 1)
Quarter: 2015Q2

REPORT INFORMATION
  Report Type: Spontaneous
  Country: US (occurrence: US)
  Receive Date: 20150529
  Receipt Date: 20150529
  Transmission Date: 20150821
  Serious: No
  Sender: FDA-Public Use
  Company Number: US-ELI_LILLY_AND_COMPANY-US201505009263

PATIENT
  Age: 14 Year
  Sex: Female
  Weight: 28.12 kg

DRUGS (1)
  1. HUMALOG [Suspect]
     Active Substance: INSULIN LISPRO
     Indication: PRODUCT USED FOR UNKNOWN INDICATION
     Dosage: UNK, UNKNOWN
     Route: 058

REACTIONS (6)
  - Blood glucose decreased [Unknown]
  - Vision blurred [Unknown]
  - Nausea [Unknown]
  - Blood glucose increased [Unknown]
  - Vomiting [Unknown]
  - Extra dose administered [Unknown]

NARRATIVE: CASE EVENT DATE: 201504
